FAERS Safety Report 8268267-X (Version None)
Quarter: 2012Q2

REPORT INFORMATION
  Report Type: 
  Country: None (occurrence: None)
  Receive Date: 20120409
  Receipt Date: 20120402
  Transmission Date: 20120825
  Serious: Yes (Hospitalization)
  Sender: FDA-Public Use
  Company Number: PHHY2012LT027757

PATIENT
  Age: 24 Year
  Sex: Female

DRUGS (2)
  1. METOCLOPRAMIDE HCL [Suspect]
     Dosage: 10 DF, UNK
     Dates: start: 20120323
  2. RAMIPRIL [Suspect]
     Dosage: 15 DF, UNK
     Dates: start: 20120323

REACTIONS (6)
  - BLOOD PRESSURE INCREASED [None]
  - COORDINATION ABNORMAL [None]
  - SOMNOLENCE [None]
  - AGITATION [None]
  - OXYGEN SATURATION DECREASED [None]
  - VOMITING [None]
